FAERS Safety Report 7826694-6 (Version None)
Quarter: 2011Q4

REPORT INFORMATION
  Report Type: 
  Country: None (occurrence: None)
  Receive Date: 20111020
  Receipt Date: 20111007
  Transmission Date: 20120403
  Serious: Yes (Other)
  Sender: FDA-Public Use
  Company Number: US-BAYER-2010-007272

PATIENT
  Sex: Female

DRUGS (3)
  1. YASMIN [Suspect]
     Indication: ACNE
     Dosage: UNK
     Dates: start: 20010101, end: 20050101
  2. IBUPROFEN (ADVIL) [Concomitant]
     Indication: MIGRAINE
     Dosage: UNK
     Route: 048
     Dates: start: 20020101
  3. YASMIN [Suspect]
     Indication: CONTRACEPTION

REACTIONS (5)
  - INJURY [None]
  - COAGULOPATHY [None]
  - DEEP VEIN THROMBOSIS [None]
  - HYPERCOAGULATION [None]
  - PAIN [None]
